FAERS Safety Report 11310555 (Version 2)
Quarter: 2015Q3

REPORT INFORMATION
  Report Type: Report from Study
  Country: KR (occurrence: KR)
  Receive Date: 20150724
  Receipt Date: 20150804
  Transmission Date: 20151125
  Serious: Yes (Other)
  Sender: FDA-Public Use
  Company Number: KR-ASTRAZENECA-2015SE70257

PATIENT
  Sex: Male

DRUGS (5)
  1. MACPERAN INJECTION 2ML [Concomitant]
     Indication: NAUSEA
     Route: 040
     Dates: start: 20150713, end: 20150713
  2. MORPHINE HCL INJECTION [Concomitant]
     Indication: CHEST PAIN
     Route: 040
     Dates: start: 20150713, end: 20150713
  3. BRILINTA [Suspect]
     Active Substance: TICAGRELOR
     Indication: ACUTE MYOCARDIAL INFARCTION
     Route: 048
     Dates: start: 20150713, end: 20150713
  4. MAGNESIN INJECTION 50% DAEWON [Concomitant]
     Indication: VENTRICULAR TACHYCARDIA
     Route: 042
     Dates: start: 20150713, end: 20150713
  5. ASPIRIN. [Suspect]
     Active Substance: ASPIRIN
     Indication: ACUTE MYOCARDIAL INFARCTION
     Route: 048
     Dates: start: 20150713, end: 20150713

REACTIONS (1)
  - Ventricular tachycardia [Recovered/Resolved]

NARRATIVE: CASE EVENT DATE: 20150713
